FAERS Safety Report 16754310 (Version 1)
Quarter: 2019Q3

REPORT INFORMATION
  Report Type: Spontaneous
  Country: CA (occurrence: CA)
  Receive Date: 20190829
  Receipt Date: 20190829
  Transmission Date: 20191005
  Serious: Yes (Death, Other)
  Sender: FDA-Public Use
  Company Number: CA-PFIZER INC-2017155665

PATIENT
  Age: 46 Year
  Sex: Female

DRUGS (1)
  1. SUTENT [Suspect]
     Active Substance: SUNITINIB MALATE
     Dosage: 50 MG, 1X/DAY (2 WEEKS OUT OF 3)
     Dates: start: 20161125

REACTIONS (1)
  - Death [Fatal]

NARRATIVE: CASE EVENT DATE: 201812
